FAERS Safety Report 18034396 (Version 1)
Quarter: 2020Q3

REPORT INFORMATION
  Report Type: Spontaneous
  Country: US (occurrence: US)
  Receive Date: 20200716
  Receipt Date: 20200716
  Transmission Date: 20201103
  Serious: No
  Sender: FDA-Public Use
  Company Number: US-TEVA-2020-US-1800956

PATIENT
  Age: 59 Year
  Sex: Female

DRUGS (2)
  1. AZITHROMYCIN LUPUS [Suspect]
     Active Substance: AZITHROMYCIN
     Route: 065
  2. AZITHROMYCIN TEVA [Suspect]
     Active Substance: AZITHROMYCIN
     Route: 065

REACTIONS (2)
  - Product formulation issue [Unknown]
  - Therapeutic product effect variable [Unknown]
